FAERS Safety Report 14587800 (Version 1)
Quarter: 2018Q1

REPORT INFORMATION
  Report Type: Spontaneous
  Country: US (occurrence: US)
  Receive Date: 20180301
  Receipt Date: 20180301
  Transmission Date: 20180509
  Serious: Yes (Hospitalization)
  Sender: FDA-Public Use
  Company Number: None

PATIENT
  Age: 66 Year
  Sex: Male
  Weight: 68.04 kg

DRUGS (1)
  1. LIRAGLUTIDE [Suspect]
     Active Substance: LIRAGLUTIDE
     Indication: DIABETES MELLITUS
     Route: 058
     Dates: start: 20180123, end: 20180127

REACTIONS (10)
  - Abdominal pain [None]
  - Retching [None]
  - Cough [None]
  - Vomiting [None]
  - Hypophagia [None]
  - Nausea [None]
  - Diarrhoea [None]
  - Abdominal pain upper [None]
  - Hiccups [None]
  - Rhinorrhoea [None]

NARRATIVE: CASE EVENT DATE: 20180127
